FAERS Safety Report 4947244-8 (Version None)
Quarter: 2006Q1

REPORT INFORMATION
  Report Type: 
  Country: None (occurrence: None)
  Receive Date: 20060201
  Receipt Date: 20051215
  Transmission Date: 20060701
  Serious: No
  Sender: FDA-Public Use
  Company Number: 2005PV006018

PATIENT
  Sex: Female

DRUGS (2)
  1. BYETTA [Suspect]
     Indication: DRUG USE FOR UNKNOWN INDICATION
     Dosage: 5MCG, UNKNOWN, 5MCG; UNKNOWN
     Dates: start: 20051201, end: 20051201
  2. BYETTA [Suspect]
     Indication: DRUG USE FOR UNKNOWN INDICATION
     Dosage: 5MCG, UNKNOWN, 5MCG; UNKNOWN
     Dates: start: 20051201

REACTIONS (2)
  - INJECTION SITE ERYTHEMA [None]
  - INJECTION SITE URTICARIA [None]
